FAERS Safety Report 7089942-9 (Version None)
Quarter: 2010Q4

REPORT INFORMATION
  Report Type: 
  Country: None (occurrence: None)
  Receive Date: 20101108
  Receipt Date: 20101026
  Transmission Date: 20110411
  Serious: Yes (Life-Threatening, Hospitalization)
  Sender: FDA-Public Use
  Company Number: BE-MYLANLABS-2010S1020069

PATIENT
  Age: 71 Year
  Sex: Female

DRUGS (5)
  1. METFORMIN HCL [Suspect]
     Route: 065
  2. GLICLAZIDE [Concomitant]
     Route: 065
  3. METOPROLOL [Concomitant]
     Route: 065
  4. ATORVASTATIN [Concomitant]
     Route: 065
  5. ASPIRIN [Concomitant]
     Route: 065

REACTIONS (3)
  - BRADYCARDIA [None]
  - CARDIAC ARREST [None]
  - METABOLIC ACIDOSIS [None]
